FAERS Safety Report 10518970 (Version 1)
Quarter: 2014Q4

REPORT INFORMATION
  Report Type: Spontaneous
  Country: DK (occurrence: DK)
  Receive Date: 20141015
  Receipt Date: 20141015
  Transmission Date: 20150528
  Serious: Yes (Hospitalization, Other)
  Sender: FDA-Public Use
  Company Number: DK-ASTRAZENECA-2014SE75540

PATIENT
  Age: 90 Year
  Sex: Male

DRUGS (2)
  1. CALCIUM + VITAMIN D3 [Concomitant]
  2. ZOLADEX [Suspect]
     Active Substance: GOSERELIN ACETATE
     Indication: ANTIANDROGEN THERAPY
     Route: 058
     Dates: start: 2008

REACTIONS (4)
  - Osteoporosis [Not Recovered/Not Resolved]
  - Metastases to bone [Not Recovered/Not Resolved]
  - Pain [Not Recovered/Not Resolved]
  - Spinal compression fracture [Not Recovered/Not Resolved]

NARRATIVE: CASE EVENT DATE: 2011
